FAERS Safety Report 5733855-9 (Version None)
Quarter: 2008Q2

REPORT INFORMATION
  Report Type: 
  Country: None (occurrence: None)
  Receive Date: 20080509
  Receipt Date: 20080502
  Transmission Date: 20081010
  Serious: Yes (Hospitalization, Other)
  Sender: FDA-Public Use
  Company Number: FR-PFIZER INC-2008037040

PATIENT
  Sex: Male
  Weight: 3.03 kg

DRUGS (5)
  1. XANAX [Suspect]
  2. ATARAX [Suspect]
     Dates: start: 20080110, end: 20080204
  3. SUBUTEX [Suspect]
     Dates: start: 20071226, end: 20080204
  4. ESCITALOPRAM [Suspect]
     Dates: start: 20070517, end: 20080204
  5. TERCIAN [Suspect]
     Dates: start: 20070517, end: 20080204

REACTIONS (8)
  - ABDOMINAL DISTENSION [None]
  - ABDOMINAL PAIN [None]
  - AGITATION [None]
  - ANXIETY [None]
  - DRUG EXPOSURE DURING PREGNANCY [None]
  - HYPERTONIA [None]
  - HYPOGLYCAEMIA [None]
  - TREMOR [None]
